FAERS Safety Report 15222313 (Version 1)
Quarter: 2018Q3

REPORT INFORMATION
  Report Type: Spontaneous
  Country: US (occurrence: US)
  Receive Date: 20180731
  Receipt Date: 20180731
  Transmission Date: 20181010
  Serious: No
  Sender: FDA-Public Use
  Company Number: US-ENDO PHARMACEUTICALS INC-2017-006018

PATIENT
  Age: 54 Year
  Sex: Female
  Weight: 76.2 kg

DRUGS (2)
  1. PREDNISONE TABLETS 10MG [Suspect]
     Active Substance: PREDNISONE
     Indication: MUSCLE SPASMS
     Dosage: 1 DF, BID
     Route: 048
     Dates: start: 20170509, end: 201709
  2. GABAPENTIN. [Concomitant]
     Active Substance: GABAPENTIN
     Indication: NERVE INJURY
     Dosage: UNK UNK, UNKNOWN
     Route: 065

REACTIONS (6)
  - Weight increased [Not Recovered/Not Resolved]
  - Mood altered [Recovered/Resolved]
  - Frustration tolerance decreased [Recovered/Resolved]
  - Night sweats [Recovered/Resolved]
  - Irritability [Recovered/Resolved]
  - Off label use [Recovered/Resolved]

NARRATIVE: CASE EVENT DATE: 201705
